FAERS Safety Report 9734191 (Version 1)
Quarter: 2013Q4

REPORT INFORMATION
  Report Type: Spontaneous
  Country: US (occurrence: US)
  Receive Date: 20131205
  Receipt Date: 20131205
  Transmission Date: 20140711
  Serious: No
  Sender: FDA-Public Use
  Company Number: US-GILEAD-2013-0089037

PATIENT
  Sex: Female

DRUGS (3)
  1. LETAIRIS [Suspect]
     Indication: PRODUCT USED FOR UNKNOWN INDICATION
     Dosage: 5 MG, QD
     Dates: start: 20131115
  2. Z-PAK [Suspect]
     Indication: NASOPHARYNGITIS
  3. Z-PAK [Suspect]
     Indication: SINUS DISORDER

REACTIONS (3)
  - Drug intolerance [Unknown]
  - Nasopharyngitis [Unknown]
  - Sinus disorder [Unknown]
